FAERS Safety Report 4364531-5 (Version None)
Quarter: 2004Q2

REPORT INFORMATION
  Report Type: 
  Country: None (occurrence: None)
  Receive Date: 20040519
  Receipt Date: 20040505
  Transmission Date: 20050107
  Serious: Yes (Death)
  Sender: FDA-Public Use
  Company Number: 6008750

PATIENT
  Age: 60 Year
  Sex: Male

DRUGS (1)
  1. CARDENSIEL (TABLETS) (BISOPROLOL) [Suspect]
     Dosage: ORAL
     Route: 048

REACTIONS (4)
  - CARDIAC OUTPUT DECREASED [None]
  - FEELING ABNORMAL [None]
  - MYOCARDIAL INFARCTION [None]
  - SUDDEN DEATH [None]
